FAERS Safety Report 8923204 (Version 2)
Quarter: 2012Q4

REPORT INFORMATION
  Report Type: 
  Country: US (occurrence: US)
  Receive Date: 20121123
  Receipt Date: 20121207
  Transmission Date: 20130627
  Serious: No
  Sender: FDA-Public Use
  Company Number: US-PFIZER INC-2012292967

PATIENT
  Age: 64 Year
  Sex: Female
  Weight: 81.6 kg

DRUGS (3)
  1. CHANTIX [Suspect]
     Indication: SMOKING CESSATION THERAPY
     Dosage: 1 mg, daily
     Dates: start: 2012, end: 2012
  2. LIPITOR [Concomitant]
     Indication: HIGH CHOLESTEROL
     Dosage: 20 mg, daily
  3. CELEBREX [Concomitant]
     Indication: OSTEOARTHRITIS
     Dosage: 200 mg, 2x/day

REACTIONS (3)
  - Anxiety [Recovered/Resolved]
  - Nightmare [Recovered/Resolved]
  - Insomnia [Unknown]
